FAERS Safety Report 5245909-4 (Version None)
Quarter: 2007Q1

REPORT INFORMATION
  Report Type: 
  Country: None (occurrence: None)
  Receive Date: 20070221
  Receipt Date: 20070205
  Transmission Date: 20070707
  Serious: Yes (Hospitalization)
  Sender: FDA-Public Use
  Company Number: 233397

PATIENT
  Age: 30 Year
  Sex: Female

DRUGS (2)
  1. HERCEPTIN [Suspect]
     Indication: BREAST CANCER
     Dosage: UNK, UNK, INTRAVENOUS
     Route: 042
     Dates: start: 20060310, end: 20061102
  2. TAMOXIFEN CITRATE [Concomitant]

REACTIONS (2)
  - EJECTION FRACTION DECREASED [None]
  - PERICARDITIS [None]
